FAERS Safety Report 21484179 (Version 1)
Quarter: 2022Q4

REPORT INFORMATION
  Report Type: Spontaneous
  Country: GB (occurrence: GB)
  Receive Date: 20221020
  Receipt Date: 20221020
  Transmission Date: 20230113
  Serious: Yes (Other)
  Sender: FDA-Public Use
  Company Number: GB-MHRA-MED-202210021814409300-LCFNJ

PATIENT

DRUGS (13)
  1. PREDNISOLONE [Suspect]
     Active Substance: PREDNISOLONE
     Indication: Facial paralysis
     Dosage: 60 MG, QD(IN THE MORNING),TABLET
     Dates: start: 20220927, end: 20221001
  2. MAGNESIUM CARBONATE [Concomitant]
     Active Substance: MAGNESIUM CARBONATE
     Indication: Supportive care
     Dosage: UNK
     Dates: start: 20220101
  3. CALCIUM [Concomitant]
     Active Substance: CALCIUM
     Indication: Supportive care
     Dosage: UNK
     Dates: start: 20220101
  4. CETIRIZINE [Concomitant]
     Active Substance: CETIRIZINE HYDROCHLORIDE
     Indication: Mast cell activation syndrome
     Dosage: UNK
     Dates: start: 20160101
  5. DULOXETINE [Concomitant]
     Active Substance: DULOXETINE
     Indication: Pain management
     Dosage: UNK
     Dates: start: 20170101
  6. IVABRADINE [Concomitant]
     Active Substance: IVABRADINE
     Indication: Autonomic nervous system imbalance
     Dates: start: 20190101
  7. LACTOBACILLUS ACIDOPHILUS [Concomitant]
     Active Substance: LACTOBACILLUS ACIDOPHILUS
     Indication: Probiotic therapy
     Dosage: UNK
     Dates: start: 20220101
  8. METHYLPHENIDATE [Concomitant]
     Active Substance: METHYLPHENIDATE
     Indication: Attention deficit hyperactivity disorder
     Dosage: UNK
     Dates: start: 20220201
  9. NAPROXEN [Concomitant]
     Active Substance: NAPROXEN
     Indication: Analgesic intervention supportive therapy
     Dosage: UNK
     Dates: start: 20170101
  10. OMEGA-3 ACIDS [Concomitant]
     Active Substance: OMEGA-3 FATTY ACIDS
     Indication: Arthralgia
     Dosage: UNK
     Dates: start: 20220101
  11. OMEPRAZOLE [Concomitant]
     Active Substance: OMEPRAZOLE
     Indication: Gastritis prophylaxis
     Dosage: UNK
     Dates: start: 20170101
  12. PROPRANOLOL [Concomitant]
     Active Substance: PROPRANOLOL HYDROCHLORIDE
     Indication: Autonomic nervous system imbalance
     Dosage: UNK
     Dates: start: 20220701
  13. VITAMIN B COMPLEX [Concomitant]
     Active Substance: CYANOCOBALAMIN\DEXPANTHENOL\NIACINAMIDE\PYRIDOXINE HYDROCHLORIDE\RIBOFLAVIN 5^-PHOSPHATE SODIUM\THIA
     Indication: Anaemia prophylaxis
     Dosage: UNK
     Dates: start: 20160101

REACTIONS (6)
  - Tremor [Unknown]
  - Hemiparesis [Recovering/Resolving]
  - Fatigue [Recovering/Resolving]
  - Hyperglycaemia [Recovered/Resolved]
  - Malaise [Unknown]
  - Rash [Recovering/Resolving]

NARRATIVE: CASE EVENT DATE: 20220928
